FAERS Safety Report 16010469 (Version 1)
Quarter: 2019Q1

REPORT INFORMATION
  Report Type: Spontaneous
  Country: IT (occurrence: IT)
  Receive Date: 20190227
  Receipt Date: 20190227
  Transmission Date: 20190418
  Serious: Yes (Hospitalization)
  Sender: FDA-Public Use
  Company Number: IT-TEVA-2019-IT-1011302

PATIENT
  Age: 2 Year
  Sex: Male
  Weight: 13 kg

DRUGS (3)
  1. METOTRESSATO TEVA 25 MG/ML SOLUZIONE INIETTABILE [Suspect]
     Active Substance: METHOTREXATE SODIUM
     Indication: B PRECURSOR TYPE ACUTE LEUKAEMIA
     Dosage: 5000 MG/M2 DAILY;
     Route: 042
     Dates: start: 20181203, end: 20181204
  2. XALUPRINE 20 MG/ML ORAL SUSPENSION [Concomitant]
     Indication: ACUTE LYMPHOCYTIC LEUKAEMIA
     Route: 048
     Dates: start: 20181119, end: 20181205
  3. KYTRIL 3 MG/3 ML SOLUZIONE INIETTABILE [Concomitant]
     Indication: NAUSEA
     Route: 042
     Dates: start: 20181203, end: 20181212

REACTIONS (2)
  - Toxicity to various agents [Recovered/Resolved with Sequelae]
  - Blood creatinine increased [Recovered/Resolved with Sequelae]

NARRATIVE: CASE EVENT DATE: 20181205
